FAERS Safety Report 21106422 (Version 1)
Quarter: 2022Q3

REPORT INFORMATION
  Report Type: Spontaneous
  Country: US (occurrence: US)
  Receive Date: 20220720
  Receipt Date: 20220720
  Transmission Date: 20221026
  Serious: No
  Sender: FDA-Public Use
  Company Number: US-BRISTOL-MYERS SQUIBB COMPANY-2022-077216

PATIENT
  Age: 76 Year
  Sex: Female

DRUGS (1)
  1. REVLIMID [Suspect]
     Active Substance: LENALIDOMIDE
     Indication: Thyroid cancer
     Route: 048
     Dates: start: 202010

REACTIONS (4)
  - Diarrhoea [Unknown]
  - Ageusia [Unknown]
  - Myalgia [Unknown]
  - Intentional product use issue [Unknown]
